FAERS Safety Report 5778596-7 (Version None)
Quarter: 2008Q2

REPORT INFORMATION
  Report Type: 
  Country: None (occurrence: None)
  Receive Date: 20080617
  Receipt Date: 20080605
  Transmission Date: 20081010
  Serious: Yes (Hospitalization)
  Sender: FDA-Public Use
  Company Number: 2008AL006442

PATIENT
  Age: 82 Year
  Sex: Female
  Weight: 79.8331 kg

DRUGS (14)
  1. DIGOXIN [Suspect]
     Indication: CARDIAC DISORDER
     Dosage: 1 TABLET PO
     Route: 048
     Dates: start: 20080401, end: 20080501
  2. DIGOXIN [Suspect]
     Dosage: INCREASED
     Dates: start: 20080501
  3. LEVOTHYROXINE SODIUM [Concomitant]
  4. FLUCONAZOLE [Concomitant]
  5. DOXYCYCLINE HCL [Concomitant]
  6. COREG [Concomitant]
  7. ENALAPRIL MALEATE [Concomitant]
  8. SPIRONOLACT [Concomitant]
  9. ISOSORBIDE DINITRATE [Concomitant]
  10. GLIMEPIRIDE [Concomitant]
  11. LASIX [Concomitant]
  12. JANUVIA [Concomitant]
  13. COUMADIN [Concomitant]
  14. ATACAND [Concomitant]

REACTIONS (4)
  - ABNORMAL BEHAVIOUR [None]
  - AMNESIA [None]
  - FALL [None]
  - INCONTINENCE [None]
